FAERS Safety Report 19646230 (Version 2)
Quarter: 2021Q3

REPORT INFORMATION
  Report Type: Other
  Country: US (occurrence: US)
  Receive Date: 20210802
  Receipt Date: 20210819
  Transmission Date: 20211014
  Serious: No
  Sender: FDA-Public Use
  Company Number: US-NEUROCRINE BIOSCIENCES INC.-2021NBI04054

PATIENT

DRUGS (2)
  1. INGREZZA [Suspect]
     Active Substance: VALBENAZINE
     Indication: TARDIVE DYSKINESIA
     Dosage: UNKNOWN DOSE
     Route: 048
  2. GINGKO BILOBA [Concomitant]
     Active Substance: GINKGO
     Indication: DEPRESSION
     Dosage: 500 MILLIGRAM

REACTIONS (3)
  - Tardive dyskinesia [Unknown]
  - Therapeutic product effect incomplete [Unknown]
  - Depression [Unknown]
